FAERS Safety Report 5235236-3 (Version None)
Quarter: 2007Q1

REPORT INFORMATION
  Report Type: 
  Country: None (occurrence: None)
  Receive Date: 20070212
  Receipt Date: 20070202
  Transmission Date: 20070707
  Serious: Yes (Other)
  Sender: FDA-Public Use
  Company Number: CA-JNJFOC-20061104671

PATIENT
  Sex: Female

DRUGS (6)
  1. DURAGESIC [Suspect]
     Route: 062
  2. DURAGESIC [Suspect]
     Route: 062
  3. DURAGESIC [Suspect]
     Route: 062
  4. DURAGESIC [Suspect]
     Indication: ARTHRALGIA
     Route: 062
  5. UNSPECIFIED MEDICATION [Concomitant]
     Indication: HYPERTENSION
     Route: 065
  6. UNSPECIFIED MEDICATION [Concomitant]
     Indication: CONSTIPATION
     Route: 065

REACTIONS (7)
  - CONSTIPATION [None]
  - FEELING HOT [None]
  - HYPERTENSION [None]
  - MUSCULAR WEAKNESS [None]
  - SKIN WARM [None]
  - TREMOR [None]
  - WRONG TECHNIQUE IN DRUG USAGE PROCESS [None]
